FAERS Safety Report 7984311-9 (Version None)
Quarter: 2011Q4

REPORT INFORMATION
  Report Type: 
  Country: None (occurrence: None)
  Receive Date: 20111214
  Receipt Date: 20111128
  Transmission Date: 20120403
  Serious: Yes (Other)
  Sender: FDA-Public Use
  Company Number: 1000025941

PATIENT
  Age: 43 Year
  Sex: Female

DRUGS (7)
  1. LEXAPRO [Suspect]
     Indication: DEPRESSIVE SYMPTOM
     Dosage: 10 MG (10 MG, 1 IN 1 D), ORAL
     Route: 048
     Dates: start: 20111116, end: 20111116
  2. EVAMYL (LORMETAZEPAM) [Concomitant]
  3. LUVOX [Concomitant]
  4. MILNACIPRAN HYDROCHLORIDE [Concomitant]
  5. DOGMATYL (SULPIRIDE) [Concomitant]
  6. LORAZEPAM [Concomitant]
  7. HALCION [Concomitant]

REACTIONS (2)
  - DIARRHOEA [None]
  - ANAPHYLACTIC SHOCK [None]
